FAERS Safety Report 20807110 (Version 1)
Quarter: 2022Q2

REPORT INFORMATION
  Report Type: Spontaneous
  Country: US (occurrence: US)
  Receive Date: 20220510
  Receipt Date: 20220510
  Transmission Date: 20220720
  Serious: Yes (Life-Threatening, Hospitalization, Other)
  Sender: FDA-Public Use
  Company Number: US-AVET LIFESCIENCES LTD-2022-AVET-000076

PATIENT
  Age: 76 Year
  Sex: Female

DRUGS (5)
  1. METOPROLOL [Suspect]
     Active Substance: METOPROLOL
     Indication: Essential hypertension
     Dosage: 200 MG PER OS (PO) TWICE A DAY
     Route: 048
  2. ENALAPRIL [Suspect]
     Active Substance: ENALAPRIL
     Indication: Essential hypertension
     Dosage: 20 MG PO TWICE DAILY
     Route: 048
  3. AMLODIPINE [Suspect]
     Active Substance: AMLODIPINE BESYLATE
     Indication: Essential hypertension
     Dosage: 10 MG PO ONCE DAILY
     Route: 048
  4. CLONIDINE [Suspect]
     Active Substance: CLONIDINE
     Indication: Essential hypertension
     Dosage: 0.1 MG PO TWICE DAILY
     Route: 048
  5. METFORMIN [Concomitant]
     Active Substance: METFORMIN HYDROCHLORIDE
     Indication: Type 2 diabetes mellitus
     Dosage: 750 MG TWICE DAILY

REACTIONS (1)
  - BRASH syndrome [Recovering/Resolving]
